FAERS Safety Report 6981622-0 (Version None)
Quarter: 2010Q3

REPORT INFORMATION
  Report Type: 
  Country: None (occurrence: None)
  Receive Date: 20100914
  Receipt Date: 20090817
  Transmission Date: 20110219
  Serious: No
  Sender: FDA-Public Use
  Company Number: US-PFIZER INC-2009258597

PATIENT
  Sex: Female

DRUGS (2)
  1. LYRICA [Suspect]
     Indication: CONNECTIVE TISSUE DISORDER
     Dosage: 50 MG, 1X/DAY
     Dates: start: 20090812, end: 20090801
  2. TRINESSA [Concomitant]
     Dosage: UNK

REACTIONS (2)
  - PRURITUS [None]
  - URTICARIA [None]
